FAERS Safety Report 8444800-X (Version None)
Quarter: 2012Q2

REPORT INFORMATION
  Report Type: 
  Country: None (occurrence: None)
  Receive Date: 20120611
  Receipt Date: 20120528
  Transmission Date: 20120825
  Serious: Yes (Disabling)
  Sender: FDA-Public Use
  Company Number: 2012-2011

PATIENT
  Age: 61 Year
  Sex: Female
  Weight: 46 kg

DRUGS (10)
  1. MULTIVITAMIN [Concomitant]
  2. WARFARIN SODIUM [Concomitant]
  3. ASPIRIN [Concomitant]
  4. DYSPORT [Suspect]
  5. DYSPORT [Suspect]
  6. REVATIO [Concomitant]
  7. VELETRI (EPOROSTENOL SODIUM) [Concomitant]
  8. TIAZAC [Concomitant]
  9. DYSPORT [Suspect]
     Indication: SKIN WRINKLING
     Dosage: 80 UNITS (80 UNITS, SINGLE CYCLE), INTRAMUSCULAR
     Route: 030
     Dates: start: 20120326, end: 20120326
  10. DYSPORT [Suspect]
     Indication: OFF LABEL USE
     Dosage: 80 UNITS (80 UNITS, SINGLE CYCLE), INTRAMUSCULAR
     Route: 030
     Dates: start: 20120326, end: 20120326

REACTIONS (3)
  - PRODUCT QUALITY ISSUE [None]
  - OFF LABEL USE [None]
  - VIITH NERVE PARALYSIS [None]
